FAERS Safety Report 13837048 (Version 1)
Quarter: 2017Q3

REPORT INFORMATION
  Report Type: Spontaneous
  Country: FR (occurrence: FR)
  Receive Date: 20170804
  Receipt Date: 20170804
  Transmission Date: 20171127
  Serious: Yes (Other)
  Sender: FDA-Public Use
  Company Number: FR-BRISTOL-MYERS SQUIBB COMPANY-BMS-2017-068597

PATIENT
  Age: 78 Year
  Sex: Male

DRUGS (1)
  1. ELIQUIS [Suspect]
     Active Substance: APIXABAN
     Indication: CEREBROVASCULAR ACCIDENT PROPHYLAXIS
     Dosage: 5 MG, BID
     Route: 048
     Dates: start: 201705, end: 20170630

REACTIONS (9)
  - Splenomegaly [Unknown]
  - Dyspnoea [Unknown]
  - Hyperhidrosis [Unknown]
  - Weight decreased [Unknown]
  - Hyperbilirubinaemia [Unknown]
  - Leukaemia [Unknown]
  - Pancytopenia [Not Recovered/Not Resolved]
  - Epstein-Barr virus test positive [Unknown]
  - Cardiomegaly [Unknown]

NARRATIVE: CASE EVENT DATE: 20170629
